FAERS Safety Report 4299846-2 (Version None)
Quarter: 2004Q1

REPORT INFORMATION
  Report Type: 
  Country: None (occurrence: None)
  Receive Date: 20040126
  Receipt Date: 20031121
  Transmission Date: 20041129
  Serious: Yes (Other)
  Sender: FDA-Public Use
  Company Number: USA031152964

PATIENT
  Age: 15 Year
  Sex: Female

DRUGS (3)
  1. STRATTERA [Suspect]
  2. PAXIL [Concomitant]
  3. ADDERALL 10 [Concomitant]

REACTIONS (1)
  - CONVULSION [None]
